FAERS Safety Report 13948216 (Version 2)
Quarter: 2017Q4

REPORT INFORMATION
  Report Type: Report from Study
  Country: US (occurrence: US)
  Receive Date: 20170908
  Receipt Date: 20171207
  Transmission Date: 20180320
  Serious: Yes (Death, Other)
  Sender: FDA-Public Use
  Company Number: US-AMGEN-USASL2017135069

PATIENT
  Age: 58 Year
  Sex: Female

DRUGS (1)
  1. ENBREL [Suspect]
     Active Substance: ETANERCEPT
     Indication: PSORIATIC ARTHROPATHY
     Dosage: 50 MG, UNK
     Route: 065

REACTIONS (2)
  - Haemorrhage intracranial [Fatal]
  - Ruptured cerebral aneurysm [Fatal]

NARRATIVE: CASE EVENT DATE: 2017
